FAERS Safety Report 24015834 (Version 1)
Quarter: 2024Q2

REPORT INFORMATION
  Report Type: Report from Study
  Country: DE (occurrence: DE)
  Receive Date: 20240626
  Receipt Date: 20240626
  Transmission Date: 20240716
  Serious: Yes (Hospitalization, Other)
  Sender: FDA-Public Use
  Company Number: DE-BAXTER-2024BAX020117

PATIENT
  Sex: Female

DRUGS (16)
  1. DOXORUBICIN [Suspect]
     Active Substance: DOXORUBICIN
     Indication: Hodgkin^s disease
     Dosage: 40 MILLIGRAM/SQ. METER, UNSPECIFIED FREQUENCY, ONGOING
     Route: 065
     Dates: start: 20210216
  2. DOXORUBICIN [Suspect]
     Active Substance: DOXORUBICIN
     Dosage: UNK, CYCLE 6, LAST DOSE PRIOR TO ADVERSE EVENTS
     Route: 065
     Dates: start: 20210217, end: 20210217
  3. CYCLOPHOSPHAMIDE [Suspect]
     Active Substance: CYCLOPHOSPHAMIDE
     Indication: Hodgkin^s disease
     Dosage: 800 MILLIGRAM/SQ. METER, UNSPECIFIED FREQUENCY
     Route: 065
     Dates: start: 20210216
  4. CYCLOPHOSPHAMIDE [Suspect]
     Active Substance: CYCLOPHOSPHAMIDE
     Dosage: 1280 MG, TOTAL DOSE, CYCLE 6, LAST DOSE PRIOR TO ADVERSE EVENTS, CYCLE 6
     Route: 065
     Dates: start: 20210217, end: 20210217
  5. BRENTUXIMAB VEDOTIN [Suspect]
     Active Substance: BRENTUXIMAB VEDOTIN
     Indication: Hodgkin^s disease
     Dosage: 1.8 MG, AT UNSPECIFIED FREQUENCY, ONGOING
     Route: 065
     Dates: start: 20210216
  6. BRENTUXIMAB VEDOTIN [Suspect]
     Active Substance: BRENTUXIMAB VEDOTIN
     Dosage: 99 MG, TOTAL DOSE, CYCLE 6, LAST DOSE PRIOR TO ONSET OF EVENTS
     Route: 065
     Dates: start: 20210216, end: 20210216
  7. DEXAMETHASONE [Suspect]
     Active Substance: DEXAMETHASONE
     Indication: Hodgkin^s disease
     Dosage: 40 MG, UNSPECIFIED FREQUENCY, ONGOING
     Route: 065
     Dates: start: 20210216
  8. DEXAMETHASONE [Suspect]
     Active Substance: DEXAMETHASONE
     Dosage: 160 MG, TOTAL DOSE, LAST DOSE PRIOR TO ADVERSE EVENTS, CYCLE 6
     Route: 065
     Dates: start: 20210220, end: 20210220
  9. DACARBAZINE [Suspect]
     Active Substance: DACARBAZINE
     Indication: Hodgkin^s disease
     Dosage: 250 MILLIGRAM/KILOGRAM, UNSPECIFIED FREQUENCY, ONGOING
     Route: 065
     Dates: start: 20210216
  10. DACARBAZINE [Suspect]
     Active Substance: DACARBAZINE
     Dosage: 480 MG, TOTAL DOSE, LAST DOSE PRIOR TO ADVERSE EVENTS, CYCLE 6
     Route: 065
     Dates: start: 20210219, end: 20210219
  11. ETOPOSIDE [Suspect]
     Active Substance: ETOPOSIDE
     Indication: Hodgkin^s disease
     Dosage: 100 MILLIGRAM/SQ. METER, UNSPECIFIED FREQUENCY, ONGOING
     Route: 065
     Dates: start: 20210216
  12. ETOPOSIDE [Suspect]
     Active Substance: ETOPOSIDE
     Dosage: 480 MG, TOTAL DOSE, LAST DOSE PRIOR TO ADVERSE EVENTS, CYCLE 6
     Route: 065
     Dates: start: 20210219, end: 20210219
  13. SULFAMETHOXAZOLE\TRIMETHOPRIM [Concomitant]
     Active Substance: SULFAMETHOXAZOLE\TRIMETHOPRIM
     Dosage: UNK, ONGOING
     Route: 065
     Dates: start: 20240217
  14. PANTOZOL [Concomitant]
     Active Substance: PANTOPRAZOLE SODIUM
     Dosage: UNK, ONGOING
     Route: 065
     Dates: start: 20210216
  15. VORICONAZOLE [Concomitant]
     Active Substance: VORICONAZOLE
     Dosage: UNK, ONGOING
     Route: 065
     Dates: start: 20210216
  16. BISOPROLOL [Concomitant]
     Active Substance: BISOPROLOL\BISOPROLOL FUMARATE
     Dosage: UNK, ONGOING
     Route: 065
     Dates: start: 20210218

REACTIONS (2)
  - Leukopenia [Recovered/Resolved]
  - Pyrexia [Recovered/Resolved]

NARRATIVE: CASE EVENT DATE: 20210224
